FAERS Safety Report 20062259 (Version 5)
Quarter: 2025Q1

REPORT INFORMATION
  Report Type: Spontaneous
  Country: US (occurrence: US)
  Receive Date: 20211112
  Receipt Date: 20250114
  Transmission Date: 20250409
  Serious: Yes (Other)
  Sender: GLAXOSMITHKLINE
  Company Number: US-GSKCCFUS-Case-01213761_AE-71092

PATIENT

DRUGS (1)
  1. NUCALA [Suspect]
     Active Substance: MEPOLIZUMAB
     Indication: Asthma
     Dosage: 100 MG/ML (EVERY 21 DAYS)
     Route: 058
     Dates: start: 20200101

REACTIONS (12)
  - Diabetes mellitus [Unknown]
  - Dizziness [Unknown]
  - Anxiety [Unknown]
  - Nervousness [Unknown]
  - Exposure via skin contact [Unknown]
  - Dyspnoea [Unknown]
  - Asthma [Unknown]
  - Wrong technique in device usage process [Unknown]
  - Accidental exposure to product [Unknown]
  - Incorrect dose administered [Unknown]
  - Product dose omission issue [Unknown]
  - Inappropriate schedule of product administration [Unknown]

NARRATIVE: CASE EVENT DATE: 20231101
